FAERS Safety Report 15784048 (Version 5)
Quarter: 2019Q3

REPORT INFORMATION
  Report Type: Report from Study
  Country: US (occurrence: US)
  Receive Date: 20190103
  Receipt Date: 20190903
  Transmission Date: 20191004
  Serious: Yes (Hospitalization, Other)
  Sender: FDA-Public Use
  Company Number: US-ROCHE-2238114

PATIENT
  Sex: Female

DRUGS (3)
  1. ATEZOLIZUMAB. [Suspect]
     Active Substance: ATEZOLIZUMAB
     Indication: INFLAMMATORY CARCINOMA OF THE BREAST
     Dosage: BY VEIN OVER ABOUT 30 MINUTES EVERY 2 WEEKS WHILE ON STUDY
     Route: 042
  2. COBIMETINIB. [Suspect]
     Active Substance: COBIMETINIB
     Indication: INFLAMMATORY CARCINOMA OF THE BREAST
     Dosage: ON A 3 WEEKS ON, 1 WEEK OFF SCHEDULE
     Route: 048
  3. ERIBULIN [Suspect]
     Active Substance: ERIBULIN
     Indication: INFLAMMATORY CARCINOMA OF THE BREAST
     Dosage: BY VEIN OVER ABOUT 5 MINUTES ON DAYS 1 AND 8 OF CYCLES 1-4
     Route: 042

REACTIONS (3)
  - Pneumonitis [Not Recovered/Not Resolved]
  - Dyspnoea [Recovered/Resolved]
  - Lung infection [Recovered/Resolved]

NARRATIVE: CASE EVENT DATE: 20181219
